FAERS Safety Report 13741797 (Version 1)
Quarter: 2017Q3

REPORT INFORMATION
  Report Type: Spontaneous
  Country: US (occurrence: US)
  Receive Date: 20170711
  Receipt Date: 20170711
  Transmission Date: 20171127
  Serious: Yes (Disabling)
  Sender: FDA-Public Use
  Company Number: None

PATIENT
  Sex: Female
  Weight: 64.47 kg

DRUGS (4)
  1. DOXYCYLCINE [Suspect]
     Active Substance: DOXYCYCLINE
     Indication: MYCOPLASMA INFECTION
     Dates: start: 20160722, end: 20160728
  2. CIPROFLOXACIN. [Suspect]
     Active Substance: CIPROFLOXACIN
     Indication: STREPTOCOCCAL INFECTION
     Route: 048
     Dates: start: 20160712, end: 20160722
  3. CIPROFLOXACIN. [Suspect]
     Active Substance: CIPROFLOXACIN
     Indication: MYCOPLASMA INFECTION
     Route: 048
     Dates: start: 20160712, end: 20160722
  4. DOXYCYLCINE [Suspect]
     Active Substance: DOXYCYCLINE
     Indication: LYME DISEASE
     Dates: start: 20160722, end: 20160728

REACTIONS (10)
  - Anaemia [None]
  - Abdominal pain [None]
  - Postural orthostatic tachycardia syndrome [None]
  - Vomiting [None]
  - Rash [None]
  - Haematochezia [None]
  - Loss of personal independence in daily activities [None]
  - Arthralgia [None]
  - Fatigue [None]
  - Visual impairment [None]

NARRATIVE: CASE EVENT DATE: 20160718
